FAERS Safety Report 9391970 (Version 1)
Quarter: 2013Q3

REPORT INFORMATION
  Report Type: Spontaneous
  Country: US (occurrence: US)
  Receive Date: 20130709
  Receipt Date: 20130709
  Transmission Date: 20140515
  Serious: No
  Sender: FDA-Public Use
  Company Number: US-009507513-1306USA014435

PATIENT
  Age: 29 Year
  Sex: Female
  Weight: 47.7 kg

DRUGS (1)
  1. IMPLANON [Suspect]
     Indication: CONTRACEPTION
     Dosage: EVERY 3 YEARS, 1 ROD
     Route: 059
     Dates: start: 20121211

REACTIONS (7)
  - Impaired healing [Unknown]
  - Nausea [Unknown]
  - Dizziness [Unknown]
  - Body temperature increased [Unknown]
  - Menstruation irregular [Unknown]
  - Stress [Unknown]
  - Nervousness [Unknown]
